FAERS Safety Report 5514343-1 (Version None)
Quarter: 2007Q4

REPORT INFORMATION
  Report Type: 
  Country: None (occurrence: None)
  Receive Date: 20071113
  Receipt Date: 20070418
  Transmission Date: 20080405
  Serious: No
  Sender: FDA-Public Use
  Company Number: A0647842A

PATIENT
  Sex: Male

DRUGS (7)
  1. COREG [Suspect]
     Route: 048
  2. DIGITEK [Concomitant]
  3. FLOMAX [Concomitant]
  4. COZAAR [Concomitant]
  5. LIPITOR [Concomitant]
  6. ASPIRIN [Concomitant]
  7. PROBENECID [Concomitant]

REACTIONS (1)
  - RASH MACULAR [None]
